FAERS Safety Report 6732418-6 (Version None)
Quarter: 2010Q2

REPORT INFORMATION
  Report Type: 
  Country: None (occurrence: None)
  Receive Date: 20100519
  Receipt Date: 20100512
  Transmission Date: 20101027
  Serious: Yes (Other)
  Sender: FDA-Public Use
  Company Number: JP-MERCK-1005USA02077

PATIENT
  Sex: Female

DRUGS (3)
  1. PEPCID [Suspect]
     Route: 041
  2. PACLITAXEL [Suspect]
     Route: 041
  3. RAMELTEON [Suspect]
     Route: 041

REACTIONS (1)
  - SHOCK [None]
